FAERS Safety Report 19739453 (Version 1)
Quarter: 2021Q3

REPORT INFORMATION
  Report Type: Spontaneous
  Country: US (occurrence: US)
  Receive Date: 20210820
  Receipt Date: 20210820
  Transmission Date: 20211014
  Serious: No
  Sender: FDA-Public Use
  Company Number: None

PATIENT

DRUGS (2)
  1. SPIRONOLACTONE. [Suspect]
     Active Substance: SPIRONOLACTONE
     Route: 048
  2. PRIMIDONE. [Suspect]
     Active Substance: PRIMIDONE
     Route: 048

REACTIONS (6)
  - Product dispensing error [None]
  - Communication disorder [None]
  - Contraindicated product prescribed [None]
  - Wrong product administered [None]
  - Transcription medication error [None]
  - Adverse event [None]
